FAERS Safety Report 17839137 (Version 1)
Quarter: 2020Q2

REPORT INFORMATION
  Report Type: Spontaneous
  Country: JP (occurrence: JP)
  Receive Date: 20200529
  Receipt Date: 20200529
  Transmission Date: 20200714
  Serious: Yes (Death, Other)
  Sender: FDA-Public Use
  Company Number: JP-AUROBINDO-AUR-APL-2020-026366

PATIENT
  Age: 68 Year
  Sex: Male

DRUGS (7)
  1. ESHAP [Suspect]
     Active Substance: CISPLATIN\CYTARABINE\ETOPOSIDE\METHYLPREDNISOLONE (ESHAP)
     Indication: CUTANEOUS T-CELL LYMPHOMA STAGE II
     Dosage: UNK, FIRST CYCLE
     Route: 065
     Dates: start: 20191011
  2. CARBOPLATIN;ETOPOSIDE;IFOSFAMIDE [Suspect]
     Active Substance: CARBOPLATIN\ETOPOSIDE\IFOSFAMIDE
     Indication: CUTANEOUS T-CELL LYMPHOMA STAGE II
     Dosage: UNK, FIRST CYCLE
     Route: 065
     Dates: start: 20191106
  3. FOLOTYN [Suspect]
     Active Substance: PRALATREXATE
     Indication: CUTANEOUS T-CELL LYMPHOMA STAGE II
     Dosage: UNK
     Route: 042
     Dates: start: 20190718
  4. FOLOTYN [Suspect]
     Active Substance: PRALATREXATE
     Dosage: UNK
     Route: 042
     Dates: start: 20190725
  5. FOLOTYN [Suspect]
     Active Substance: PRALATREXATE
     Dosage: UNK
     Route: 042
     Dates: start: 20190801
  6. CHOP [Suspect]
     Active Substance: CYCLOPHOSPHAMIDE\DOXORUBICIN\PREDNISONE\VINCRISTINE
     Indication: CUTANEOUS T-CELL LYMPHOMA STAGE II
     Dosage: UNK, FIRST CYCLE
     Route: 065
     Dates: start: 20190821
  7. CHOP [Suspect]
     Active Substance: CYCLOPHOSPHAMIDE\DOXORUBICIN\PREDNISONE\VINCRISTINE
     Dosage: UNK, SECOND CYCLE
     Route: 065
     Dates: start: 20190918

REACTIONS (5)
  - Respiratory failure [Fatal]
  - Lymphadenopathy [Unknown]
  - Altered state of consciousness [Unknown]
  - Malignant neoplasm progression [Unknown]
  - Tumour invasion [Unknown]
